FAERS Safety Report 5566399-8 (Version None)
Quarter: 2007Q4

REPORT INFORMATION
  Report Type: 
  Country: None (occurrence: None)
  Receive Date: 20071115
  Receipt Date: 20071115
  Transmission Date: 20080405
  Serious: No
  Sender: FDA-Public Use
  Company Number: None

PATIENT
  Age: 33 Year
  Sex: Female
  Weight: 92.5338 kg

DRUGS (1)
  1. CERVIDIL [Suspect]
     Indication: INDUCED LABOUR
     Dosage: 10 MG ONCE VAG
     Route: 067
     Dates: start: 20071104, end: 20071104

REACTIONS (2)
  - INCORRECT DOSE ADMINISTERED [None]
  - PHARMACEUTICAL PRODUCT COMPLAINT [None]
